FAERS Safety Report 21539287 (Version 1)
Quarter: 2022Q4

REPORT INFORMATION
  Report Type: Report from Study
  Country: JP (occurrence: JP)
  Receive Date: 20221102
  Receipt Date: 20221102
  Transmission Date: 20230113
  Serious: Yes (Hospitalization)
  Sender: FDA-Public Use
  Company Number: JP-ABBVIE-20K-087-3309214-00

PATIENT
  Age: 69 Year
  Sex: Male

DRUGS (2)
  1. CARBIDOPA\LEVODOPA [Suspect]
     Active Substance: CARBIDOPA\LEVODOPA
     Indication: Parkinson^s disease
     Route: 050
     Dates: start: 20200123
  2. CARBIDOPA\LEVODOPA [Suspect]
     Active Substance: CARBIDOPA\LEVODOPA

REACTIONS (16)
  - Ileus [Unknown]
  - Crohn^s disease [Unknown]
  - Mobility decreased [Unknown]
  - Device placement issue [Unknown]
  - Wheelchair user [Unknown]
  - Device connection issue [Unknown]
  - On and off phenomenon [Unknown]
  - Drug ineffective [Unknown]
  - Stoma site discharge [Unknown]
  - Stoma site hypergranulation [Unknown]
  - Stoma site pain [Unknown]
  - Stoma site pruritus [Unknown]
  - Stoma site erythema [Unknown]
  - Stoma site oedema [Unknown]
  - Stoma site extravasation [Unknown]
  - Insomnia [Unknown]

NARRATIVE: CASE EVENT DATE: 20200101
